FAERS Safety Report 7895590-0 (Version None)
Quarter: 2011Q4

REPORT INFORMATION
  Report Type: 
  Country: None (occurrence: None)
  Receive Date: 20111102
  Receipt Date: 20111017
  Transmission Date: 20120403
  Serious: Yes (Other)
  Sender: FDA-Public Use
  Company Number: JPI-P-017747

PATIENT
  Age: 43 Year
  Sex: Female
  Weight: 92.9874 kg

DRUGS (3)
  1. XYREM [Suspect]
     Indication: NARCOLEPSY
     Dosage: /2 IN 1 D), ORAL; 7.5 GM (3.75 GM, 2 IN 1 D), ORAL
     Route: 048
     Dates: start: 20110401, end: 20110101
  2. XYREM [Suspect]
     Indication: NARCOLEPSY
     Dosage: /2 IN 1 D), ORAL; 7.5 GM (3.75 GM, 2 IN 1 D), ORAL
     Route: 048
     Dates: start: 20110101, end: 20110101
  3. MULTIPLE UNSPECIFIED MEDICATIONS [Concomitant]

REACTIONS (3)
  - SLEEP APNOEA SYNDROME [None]
  - FOOT FRACTURE [None]
  - FALL [None]
